FAERS Safety Report 9731081 (Version 2)
Quarter: 2013Q4

REPORT INFORMATION
  Report Type: Spontaneous
  Country: IT (occurrence: IT)
  Receive Date: 20131203
  Receipt Date: 20131203
  Transmission Date: 20140711
  Serious: Yes (Hospitalization)
  Sender: FDA-Public Use
  Company Number: IT-ASTRAZENECA-2013SE67999

PATIENT
  Age: 30836 Day
  Sex: Female

DRUGS (7)
  1. TENORETIC [Suspect]
     Indication: HYPERTENSION
     Dosage: 50 MG +12.5 MG, 1 DF DAILY
     Route: 048
     Dates: start: 20080101, end: 20130725
  2. LORAZEPAM [Concomitant]
  3. ARTROTEC (DICLOFENAC + MISOPROSTOL ) [Concomitant]
     Indication: OSTEOARTHRITIS
     Dosage: 50 MG + 200 MCG, UNKNOWN
     Route: 048
  4. ESOPRAL(ESOMEPRAZOLE) [Concomitant]
  5. NEURONTIN (GABAPENTIN) [Concomitant]
  6. APLAKET (TICLOPIDINE) [Concomitant]
  7. LERCADIP(LERCANIDIPINE) [Concomitant]

REACTIONS (2)
  - Asthenia [Recovered/Resolved]
  - Hyponatraemia [Recovered/Resolved]
